FAERS Safety Report 23550441 (Version 1)
Quarter: 2024Q1

REPORT INFORMATION
  Report Type: Spontaneous
  Country: US (occurrence: None)
  Receive Date: 20240221
  Receipt Date: 20240221
  Transmission Date: 20240409
  Serious: Yes (Death)
  Sender: FDA-Public Use
  Company Number: None

PATIENT
  Age: 63 Year
  Sex: Male

DRUGS (1)
  1. RETEVMO [Suspect]
     Active Substance: SELPERCATINIB
     Indication: Oesophageal carcinoma
     Dosage: FREQUENCY : TWICE A DAY;?
     Dates: start: 20231115, end: 20231229

REACTIONS (1)
  - Death [None]

NARRATIVE: CASE EVENT DATE: 20231229
